FAERS Safety Report 7974599-2 (Version None)
Quarter: 2011Q4

REPORT INFORMATION
  Report Type: 
  Country: None (occurrence: None)
  Receive Date: 20111213
  Receipt Date: 20111208
  Transmission Date: 20120403
  Serious: Yes (Hospitalization)
  Sender: FDA-Public Use
  Company Number: NL-ABBOTT-11P-114-0871596-00

PATIENT
  Age: 77 Year
  Sex: Female

DRUGS (3)
  1. PAROXETINE HCL [Concomitant]
     Indication: PRODUCT USED FOR UNKNOWN INDICATION
     Dates: start: 20090101
  2. DEPAKENE [Suspect]
     Indication: CONVULSION
     Route: 048
     Dates: start: 20110401
  3. AMLODIPINE [Concomitant]
     Indication: PRODUCT USED FOR UNKNOWN INDICATION
     Dates: start: 20100101

REACTIONS (3)
  - CONFUSIONAL STATE [None]
  - LISTLESS [None]
  - MEMORY IMPAIRMENT [None]
